FAERS Safety Report 25092949 (Version 1)
Quarter: 2025Q1

REPORT INFORMATION
  Report Type: Spontaneous
  Country: FR (occurrence: FR)
  Receive Date: 20250319
  Receipt Date: 20250319
  Transmission Date: 20250409
  Serious: Yes (Hospitalization, Other)
  Sender: AUROBINDO
  Company Number: FR-AFSSAPS-RS2025000209

PATIENT
  Age: 74 Year
  Sex: Male
  Weight: 85.6 kg

DRUGS (3)
  1. PREDNISONE [Suspect]
     Active Substance: PREDNISONE
     Indication: Product used for unknown indication
     Dosage: 80 MILLIGRAM, ONCE A DAY
     Route: 048
     Dates: start: 20241227
  2. NICORANDIL [Suspect]
     Active Substance: NICORANDIL
     Indication: Myocardial ischaemia
     Dosage: 60 MILLIGRAM, ONCE A DAY
     Route: 048
     Dates: start: 2015, end: 20250226
  3. KARDEGIC [Suspect]
     Active Substance: ASPIRIN DL-LYSINE
     Indication: Myocardial ischaemia
     Dosage: 160 MILLIGRAM, ONCE A DAY
     Route: 048
     Dates: start: 2015, end: 20250226

REACTIONS (3)
  - Gastric ulcer [Recovering/Resolving]
  - Gastrointestinal haemorrhage [Recovering/Resolving]
  - Anaemia [Recovering/Resolving]

NARRATIVE: CASE EVENT DATE: 20250222
